FAERS Safety Report 5776889-0 (Version None)
Quarter: 2008Q2

REPORT INFORMATION
  Report Type: 
  Country: None (occurrence: None)
  Receive Date: 20080618
  Receipt Date: 20080616
  Transmission Date: 20081010
  Serious: Yes (Other)
  Sender: FDA-Public Use
  Company Number: A0733150A

PATIENT
  Age: 67 Year
  Sex: Female

DRUGS (8)
  1. ADVAIR DISKUS 100/50 [Suspect]
     Indication: CHRONIC OBSTRUCTIVE PULMONARY DISEASE
     Dosage: 1PUFF TWICE PER DAY
     Route: 055
     Dates: start: 20050101
  2. LANTUS [Concomitant]
  3. NOVOLOG [Concomitant]
  4. TRICOR [Concomitant]
  5. VYTORIN [Concomitant]
  6. LOVAZA [Concomitant]
  7. IRON [Concomitant]
  8. CHEMOTHERAPY [Concomitant]

REACTIONS (5)
  - LUNG NEOPLASM MALIGNANT [None]
  - PHARMACEUTICAL PRODUCT COMPLAINT [None]
  - PULMONARY MASS [None]
  - RED BLOOD CELL COUNT DECREASED [None]
  - WHITE BLOOD CELL COUNT DECREASED [None]
